FAERS Safety Report 9727763 (Version 1)
Quarter: 2013Q4

REPORT INFORMATION
  Report Type: Spontaneous
  Country: US (occurrence: US)
  Receive Date: 20131203
  Receipt Date: 20131203
  Transmission Date: 20140711
  Serious: No
  Sender: FDA-Public Use
  Company Number: US-ENDO PHARMACEUTICALS INC.-AMIT20130014

PATIENT
  Sex: Female

DRUGS (4)
  1. AMITRIPTYLINE [Suspect]
     Indication: INSOMNIA
     Route: 048
     Dates: start: 201212
  2. AMITRIPTYLINE [Suspect]
     Route: 048
  3. PRILOSEC [Concomitant]
     Indication: PRODUCT USED FOR UNKNOWN INDICATION
     Dosage: UNKNOWN
     Route: 065
  4. TOPROL [Concomitant]
     Indication: HYPERTENSION
     Dosage: UNKNOWN
     Route: 065

REACTIONS (6)
  - Memory impairment [Unknown]
  - Sleep talking [Unknown]
  - Somnolence [Unknown]
  - Abnormal dreams [Unknown]
  - Weight increased [Unknown]
  - Off label use [Not Recovered/Not Resolved]
